FAERS Safety Report 5993505-3 (Version None)
Quarter: 2008Q4

REPORT INFORMATION
  Report Type: 
  Country: None (occurrence: None)
  Receive Date: 20081212
  Receipt Date: 20081202
  Transmission Date: 20090506
  Serious: Yes (Death, Hospitalization)
  Sender: FDA-Public Use
  Company Number: NL-JNJFOC-20080103368

PATIENT
  Sex: Male

DRUGS (6)
  1. REMICADE [Suspect]
     Route: 042
  2. REMICADE [Suspect]
     Route: 042
  3. REMICADE [Suspect]
     Indication: CROHN'S DISEASE
     Route: 042
  4. OMEPRAZOLE [Concomitant]
  5. PENTASA [Concomitant]
  6. OXAZEPAM [Concomitant]

REACTIONS (5)
  - ANAEMIA [None]
  - BRONCHIAL CARCINOMA [None]
  - FISTULA [None]
  - PELVIC ABSCESS [None]
  - RECTAL CANCER [None]
